FAERS Safety Report 14916970 (Version 1)
Quarter: 2018Q2

REPORT INFORMATION
  Report Type: Spontaneous
  Country: DE (occurrence: DE)
  Receive Date: 20180520
  Receipt Date: 20180520
  Transmission Date: 20180711
  Serious: Yes (Other)
  Sender: FDA-Public Use
  Company Number: PHHY2018DE009463

PATIENT
  Sex: Male

DRUGS (1)
  1. EXTAVIA [Suspect]
     Active Substance: INTERFERON BETA-1B
     Indication: PRODUCT USED FOR UNKNOWN INDICATION
     Dosage: 250 UG/ML, (MONDAY, WEDNESDAY, THURSDAY)
     Route: 065
     Dates: start: 2013

REACTIONS (8)
  - Nasopharyngitis [Unknown]
  - Injection site warmth [Unknown]
  - Injection site swelling [Unknown]
  - Pain [Unknown]
  - Inappropriate schedule of drug administration [Unknown]
  - Injection site pain [Unknown]
  - Appendix disorder [Unknown]
  - Peripheral swelling [Unknown]
